FAERS Safety Report 4396284-9 (Version None)
Quarter: 2004Q3

REPORT INFORMATION
  Report Type: 
  Country: None (occurrence: None)
  Receive Date: 20040713
  Receipt Date: 20040325
  Transmission Date: 20050211
  Serious: Yes (Other)
  Sender: FDA-Public Use
  Company Number: US-GLAXOSMITHKLINE-A0504585A

PATIENT
  Age: 40 Year
  Sex: Female
  Weight: 55.5 kg

DRUGS (6)
  1. WELLBUTRIN [Suspect]
     Indication: EX-SMOKER
     Dosage: 150MG TWICE PER DAY
     Route: 048
     Dates: start: 20031002
  2. ALCOHOL [Suspect]
  3. ALBUTEROL [Concomitant]
  4. ADVAIR DISKUS 100/50 [Concomitant]
  5. ELAVIL [Concomitant]
  6. TYLENOL [Concomitant]

REACTIONS (5)
  - ALCOHOL POISONING [None]
  - CONTUSION [None]
  - DIZZINESS [None]
  - FALL [None]
  - SYNCOPE [None]
